FAERS Safety Report 8144391-7 (Version None)
Quarter: 2012Q1

REPORT INFORMATION
  Report Type: 
  Country: None (occurrence: None)
  Receive Date: 20120217
  Receipt Date: 20120213
  Transmission Date: 20120608
  Serious: Yes (Life-Threatening, Hospitalization)
  Sender: FDA-Public Use
  Company Number: FR-ELI_LILLY_AND_COMPANY-FR201202003212

PATIENT
  Sex: Male

DRUGS (5)
  1. HYDROCORTISONE [Concomitant]
  2. THERAPEUTIC RADIOPHARMACEUTICALS [Concomitant]
     Indication: THYMOMA
     Dosage: UNK
     Dates: start: 20111021, end: 20111122
  3. OLMESARTAN MEDOXOMIL [Concomitant]
  4. ALIMTA [Suspect]
     Indication: THYMOMA
     Dosage: 500 MG, UNK
     Route: 042
     Dates: start: 20111001, end: 20111215
  5. INNOHEP [Concomitant]
     Dosage: 1 INJECTION, QD
     Dates: start: 20110401

REACTIONS (4)
  - CARDIAC ARREST [None]
  - MYOCARDIAL INFARCTION [None]
  - VENTRICULAR FIBRILLATION [None]
  - PANCYTOPENIA [None]
